FAERS Safety Report 10038847 (Version 2)
Quarter: 2014Q2

REPORT INFORMATION
  Report Type: Spontaneous
  Country: US (occurrence: US)
  Receive Date: 20140326
  Receipt Date: 20140422
  Transmission Date: 20141212
  Serious: Yes (Other)
  Sender: FDA-Public Use
  Company Number: US-GLAXOSMITHKLINE-A1066732A

PATIENT
  Age: 57 Year
  Sex: Male
  Weight: 75.5 kg

DRUGS (12)
  1. SEREVENT [Suspect]
     Indication: ASTHMA
     Route: 055
  2. LANTUS [Concomitant]
  3. NOVOLIN R [Concomitant]
  4. QVAR [Concomitant]
  5. PROAIR HFA [Concomitant]
  6. NAPROSYN [Concomitant]
  7. ZESTRIL [Concomitant]
  8. LITHOBID [Concomitant]
  9. NITROSTAT [Concomitant]
  10. ASPIRIN [Concomitant]
  11. LANCETS [Concomitant]
  12. SYRINGE 1ML [Concomitant]

REACTIONS (2)
  - Disability [Unknown]
  - Ill-defined disorder [Unknown]
